FAERS Safety Report 9680838 (Version 1)
Quarter: 2013Q4

REPORT INFORMATION
  Report Type: Report from Study
  Country: NL (occurrence: NL)
  Receive Date: 20131111
  Receipt Date: 20131111
  Transmission Date: 20140711
  Serious: Yes (Death)
  Sender: FDA-Public Use
  Company Number: PHHY2013NL127243

PATIENT
  Sex: Male

DRUGS (4)
  1. ZOMETA [Suspect]
     Indication: PROSTATE CANCER METASTATIC
     Dosage: 4 MG (4 MG/ 100 MG), PER 4 WEEK
     Route: 042
  2. ZOMETA [Suspect]
     Dosage: 4 MG (4 MG/ 100 MG), PER 4 WEEK
     Route: 042
     Dates: start: 20111201
  3. ZOMETA [Suspect]
     Dosage: 4 MG (4 MG/ 100 MG), PER 4 WEEK
     Route: 042
     Dates: start: 20130909
  4. ZOMETA [Suspect]
     Dosage: 4 MG (4 MG/ 100 MG), PER 4 WEEK
     Route: 042
     Dates: start: 20131007

REACTIONS (1)
  - Myocardial infarction [Fatal]
